FAERS Safety Report 5349473-0 (Version None)
Quarter: 2007Q2

REPORT INFORMATION
  Report Type: 
  Country: None (occurrence: None)
  Receive Date: 20070504
  Receipt Date: 20060719
  Transmission Date: 20071010
  Serious: Yes (Other)
  Sender: FDA-Public Use
  Company Number: PHEH2006US09287

PATIENT
  Age: 49 Year
  Sex: Female
  Weight: 74.8 kg

DRUGS (2)
  1. DIOVAN HCT [Suspect]
     Indication: HYPERTENSION
     Dosage: 1 DF, QD, ORAL
     Route: 048
     Dates: start: 20060703, end: 20060716
  2. DIOVAN [Suspect]
     Indication: HYPERTENSION
     Dosage: 80 MG, QD, ORAL
     Route: 048
     Dates: start: 20060718, end: 20060718

REACTIONS (10)
  - ASTHENIA [None]
  - DIARRHOEA [None]
  - DRY MOUTH [None]
  - HEART RATE [None]
  - MUSCLE SPASMS [None]
  - MUSCLE TWITCHING [None]
  - MYALGIA [None]
  - POLLAKIURIA [None]
  - URTICARIA [None]
  - WEIGHT DECREASED [None]
